FAERS Safety Report 14470512 (Version 1)
Quarter: 2018Q1

REPORT INFORMATION
  Report Type: Spontaneous
  Country: FR (occurrence: FR)
  Receive Date: 20180131
  Receipt Date: 20180131
  Transmission Date: 20180509
  Serious: Yes (Other)
  Sender: FDA-Public Use
  Company Number: FR-DRREDDYS-GER/FRA/18/0096040

PATIENT
  Age: 45 Year
  Sex: Female

DRUGS (3)
  1. NIFLUGEL [Concomitant]
     Active Substance: NIFLUMIC ACID
     Indication: PRODUCT USED FOR UNKNOWN INDICATION
     Dosage: 2 DF, QD
     Route: 061
     Dates: start: 20141007, end: 20141007
  2. LEVOTHYROX [Concomitant]
     Active Substance: LEVOTHYROXINE
     Indication: PRODUCT USED FOR UNKNOWN INDICATION
     Dosage: UNK, QD
     Route: 048
  3. FONDAPARINUX [Suspect]
     Active Substance: FONDAPARINUX
     Indication: VENOUS THROMBOSIS
     Dosage: 2.5 MG, QD
     Route: 058
     Dates: start: 20141007, end: 20141107

REACTIONS (1)
  - Thrombophlebitis superficial [Unknown]
